FAERS Safety Report 17417113 (Version 1)
Quarter: 2020Q1

REPORT INFORMATION
  Report Type: Spontaneous
  Country: SI (occurrence: SI)
  Receive Date: 20200214
  Receipt Date: 20200214
  Transmission Date: 20200409
  Serious: Yes (Other)
  Sender: FDA-Public Use
  Company Number: NVSC2020SI039251

PATIENT
  Age: 79 Year
  Sex: Male
  Weight: 67 kg

DRUGS (5)
  1. SIMDAX [Suspect]
     Active Substance: LEVOSIMENDAN
     Indication: CARDIAC FAILURE
     Dosage: UNK
     Route: 041
  2. ENTRESTO [Suspect]
     Active Substance: SACUBITRIL\VALSARTAN
     Indication: CARDIAC FAILURE
     Dosage: 2 DF, QD (2X1 TBL)
     Route: 065
  3. BIKALUTAMID LEK [Suspect]
     Active Substance: BICALUTAMIDE
     Indication: PRODUCT USED FOR UNKNOWN INDICATION
     Dosage: 2 DF, UNKNOWN
     Route: 065
  4. EDEMID [Suspect]
     Active Substance: FUROSEMIDE
     Indication: PRODUCT USED FOR UNKNOWN INDICATION
     Dosage: 120 MG, QD (80 MG IN THE MORNING AND 40 MG AT NOON)
     Route: 048
  5. MAREVAN [Suspect]
     Active Substance: WARFARIN SODIUM
     Indication: PRODUCT USED FOR UNKNOWN INDICATION
     Dosage: UNK
     Route: 065

REACTIONS (24)
  - Bundle branch block [Unknown]
  - Mitral valve disease [Unknown]
  - Degenerative aortic valve disease [Unknown]
  - Renal infarct [Unknown]
  - Prostate infection [Unknown]
  - Sarcopenia [Unknown]
  - Coronary artery aneurysm [Unknown]
  - Laboratory test abnormal [Unknown]
  - Ejection fraction decreased [Unknown]
  - Pulmonary arterial wedge pressure increased [Recovering/Resolving]
  - Aortic dilatation [Unknown]
  - Drug ineffective [Unknown]
  - Systolic dysfunction [Unknown]
  - Right ventricular enlargement [Unknown]
  - Ventricular dyssynchrony [Unknown]
  - Coronary artery disease [Unknown]
  - Product prescribing error [Unknown]
  - Renal cancer [Unknown]
  - Chronic kidney disease [Unknown]
  - Thirst [Unknown]
  - Renal embolism [Unknown]
  - Hypotension [Unknown]
  - Arteriosclerosis [Unknown]
  - Left ventricular enlargement [Unknown]

NARRATIVE: CASE EVENT DATE: 2000
